FAERS Safety Report 13032816 (Version 28)
Quarter: 2020Q3

REPORT INFORMATION
  Report Type: Spontaneous
  Country: US (occurrence: US)
  Receive Date: 20161215
  Receipt Date: 20200716
  Transmission Date: 20201102
  Serious: Yes (Hospitalization, Other)
  Sender: FDA-Public Use
  Company Number: US-ACTELION-A-NJ2016-146895

PATIENT
  Age: 52 Year
  Sex: Female
  Weight: 74.38 kg

DRUGS (17)
  1. VELETRI [Suspect]
     Active Substance: EPOPROSTENOL
     Indication: PULMONARY ARTERIAL HYPERTENSION
     Dosage: 31.9 NG/KG, PER MIN
     Route: 042
  2. VELETRI [Suspect]
     Active Substance: EPOPROSTENOL
     Dosage: 45 KG, UNK
     Route: 042
  3. VELETRI [Suspect]
     Active Substance: EPOPROSTENOL
     Dosage: 32 NG/KG, PER MIN
     Route: 042
  4. VELETRI [Suspect]
     Active Substance: EPOPROSTENOL
     Dosage: UNK
     Route: 042
     Dates: start: 20160729
  5. VELETRI [Suspect]
     Active Substance: EPOPROSTENOL
     Dosage: 29.5 NG/KG, PER MIN
     Route: 042
  6. NIFEDIPINE. [Concomitant]
     Active Substance: NIFEDIPINE
  7. FLECAINIDE [Concomitant]
     Active Substance: FLECAINIDE
  8. VELETRI [Suspect]
     Active Substance: EPOPROSTENOL
     Dosage: 32 NG/KG, PER MIN
     Route: 042
  9. POTASSIUM [Concomitant]
     Active Substance: POTASSIUM
     Dosage: 10 MEQ, BID
     Dates: start: 20160906
  10. WARFARIN [Concomitant]
     Active Substance: WARFARIN
     Dosage: UNK
  11. CORTEF [Concomitant]
     Active Substance: HYDROCORTISONE
  12. VELETRI [Suspect]
     Active Substance: EPOPROSTENOL
     Dosage: 25.5 NG/KG, PER MIN
     Route: 042
     Dates: start: 20160731
  13. LASIX [Concomitant]
     Active Substance: FUROSEMIDE
     Dosage: 20 MG, QD PRN
     Dates: start: 20170313
  14. VELETRI [Suspect]
     Active Substance: EPOPROSTENOL
     Dosage: 16.5 NG/KG, PER MIN
     Route: 042
     Dates: start: 20160815
  15. HYDROCORTISONE. [Concomitant]
     Active Substance: HYDROCORTISONE
     Dosage: UNK
     Dates: start: 20180109
  16. DIGOXIN. [Concomitant]
     Active Substance: DIGOXIN
     Dosage: 0.125 MG, QD
     Dates: start: 20170821
  17. VITAMIN D3 [Concomitant]
     Active Substance: CHOLECALCIFEROL
     Dosage: UNK

REACTIONS (41)
  - Oxygen saturation decreased [Unknown]
  - Cardioversion [Unknown]
  - Cardiac flutter [Unknown]
  - Fatigue [Unknown]
  - Feeling abnormal [Unknown]
  - Pain in jaw [Unknown]
  - Palpitations [Unknown]
  - Hypovolaemia [Recovering/Resolving]
  - Hyperthyroidism [Unknown]
  - Supraventricular tachycardia [Recovered/Resolved]
  - Adrenal insufficiency [Recovering/Resolving]
  - Blood glucose abnormal [Recovering/Resolving]
  - Weight decreased [Unknown]
  - Rash [Unknown]
  - Dyspnoea [Unknown]
  - Diarrhoea [Unknown]
  - Device malfunction [Recovered/Resolved]
  - Device breakage [Unknown]
  - Dizziness [Unknown]
  - Heart rate abnormal [Recovering/Resolving]
  - Body temperature abnormal [Recovering/Resolving]
  - Device leakage [Recovered/Resolved]
  - Catheter management [Recovered/Resolved]
  - Hypotension [Unknown]
  - Cortisol abnormal [Recovering/Resolving]
  - Arrhythmia [Unknown]
  - Atrial flutter [Unknown]
  - Thyroid function test abnormal [Unknown]
  - Gallbladder disorder [Unknown]
  - Confusional state [Unknown]
  - Catheter site haemorrhage [Unknown]
  - Heart rate increased [Unknown]
  - Nasopharyngitis [Unknown]
  - Malaise [Unknown]
  - Pollakiuria [Unknown]
  - Somnolence [Unknown]
  - International normalised ratio increased [Unknown]
  - Blood sodium abnormal [Recovering/Resolving]
  - Cardiac ablation [Unknown]
  - Decreased appetite [Unknown]
  - Pain in extremity [Unknown]

NARRATIVE: CASE EVENT DATE: 20161208
